FAERS Safety Report 5755115-2 (Version None)
Quarter: 2008Q2

REPORT INFORMATION
  Report Type: 
  Country: None (occurrence: None)
  Receive Date: 20080602
  Receipt Date: 20071113
  Transmission Date: 20081010
  Serious: No
  Sender: FDA-Public Use
  Company Number: A0694242A

PATIENT
  Age: 2 Year
  Sex: Female

DRUGS (2)
  1. AUGMENTIN '125' [Suspect]
     Indication: PNEUMONIA
     Dosage: 600MG TWICE PER DAY
     Route: 048
     Dates: start: 20071109
  2. TYLENOL [Concomitant]

REACTIONS (3)
  - DIARRHOEA [None]
  - DISSOCIATION [None]
  - RASH [None]
